FAERS Safety Report 19714025 (Version 3)
Quarter: 2021Q3

REPORT INFORMATION
  Report Type: Spontaneous
  Country: JP (occurrence: JP)
  Receive Date: 20210818
  Receipt Date: 20210823
  Transmission Date: 20211014
  Serious: Yes (Hospitalization, Other)
  Sender: FDA-Public Use
  Company Number: JP-BRISTOL-MYERS SQUIBB COMPANY-BMS-2021-080910

PATIENT
  Age: 70 Year
  Sex: Male

DRUGS (4)
  1. CARBOPLATIN. [Suspect]
     Active Substance: CARBOPLATIN
     Indication: NON-SMALL CELL LUNG CANCER RECURRENT
     Dosage: UNKNOWN
     Route: 065
     Dates: start: 20210714
  2. OPDIVO [Suspect]
     Active Substance: NIVOLUMAB
     Indication: NON-SMALL CELL LUNG CANCER RECURRENT
     Dosage: 360 MILLIGRAM
     Route: 041
     Dates: start: 20210714
  3. YERVOY [Suspect]
     Active Substance: IPILIMUMAB
     Indication: NON-SMALL CELL LUNG CANCER RECURRENT
     Dosage: 1 MILLIGRAM/KILOGRAM
     Route: 041
     Dates: start: 20210714
  4. PACLITAXEL. [Suspect]
     Active Substance: PACLITAXEL
     Indication: NON-SMALL CELL LUNG CANCER RECURRENT
     Dosage: UNKNOWN
     Route: 065
     Dates: start: 20210714

REACTIONS (3)
  - Interstitial lung disease [Recovering/Resolving]
  - Renal disorder [Recovering/Resolving]
  - Skin disorder [Unknown]

NARRATIVE: CASE EVENT DATE: 202107
